FAERS Safety Report 7519849-1 (Version None)
Quarter: 2011Q2

REPORT INFORMATION
  Report Type: 
  Country: None (occurrence: None)
  Receive Date: 20110602
  Receipt Date: 20110525
  Transmission Date: 20111010
  Serious: Yes (Other)
  Sender: FDA-Public Use
  Company Number: DE-UCBSA-033977

PATIENT
  Age: 30 Year
  Sex: Male

DRUGS (5)
  1. VIMPAT [Suspect]
  2. VIMPAT [Suspect]
     Dosage: DOSE INCREASED
  3. KEPPRA [Suspect]
  4. CARBAMAZEPINE [Concomitant]
  5. KEPPRA [Suspect]
     Dosage: DOSE INCREASED

REACTIONS (1)
  - CONVULSION [None]
